FAERS Safety Report 10621545 (Version 1)
Quarter: 2014Q4

REPORT INFORMATION
  Report Type: Report from Study
  Country: US (occurrence: US)
  Receive Date: 20141203
  Receipt Date: 20141203
  Transmission Date: 20150529
  Serious: Yes (Hospitalization)
  Sender: FDA-Public Use
  Company Number: US-ROCHE-1499136

PATIENT
  Age: 51 Year
  Sex: Male
  Weight: 82.3 kg

DRUGS (6)
  1. RITUXIMAB [Suspect]
     Active Substance: RITUXIMAB
     Dosage: 100 MG/HR FOR FIRST 15 MIN AND INCREASED OVER NEXT 45-60 MIN ON DAY 5, CYCLE 1, AND ON DAY1, CYCLE 2
     Route: 042
  2. RITUXIMAB [Suspect]
     Active Substance: RITUXIMAB
     Route: 042
     Dates: start: 20110511
  3. RITUXIMAB [Suspect]
     Active Substance: RITUXIMAB
     Indication: CHRONIC LYMPHOCYTIC LEUKAEMIA
     Dosage: OVER 4 HRS ON DAY 1, CYCLE 1
     Route: 042
     Dates: start: 20110104
  4. RITUXIMAB [Suspect]
     Active Substance: RITUXIMAB
     Dosage: 50-400 MG/HR BASED ON INFUSION REACTION ON DAY 3, CYCLE 1
     Route: 042
  5. FLUDARABINE [Suspect]
     Active Substance: FLUDARABINE PHOSPHATE
     Indication: CHRONIC LYMPHOCYTIC LEUKAEMIA
     Dosage: OVER 30 MIN OR 40 MG/M2 PER ORAL ON DAY 1-5
     Route: 042
  6. FLUDARABINE [Suspect]
     Active Substance: FLUDARABINE PHOSPHATE
     Route: 042
     Dates: start: 20110515

REACTIONS (1)
  - Anal fistula [Recovering/Resolving]

NARRATIVE: CASE EVENT DATE: 20110520
